FAERS Safety Report 9109014 (Version 1)
Quarter: 2013Q1

REPORT INFORMATION
  Report Type: Spontaneous
  Country: US (occurrence: US)
  Receive Date: 20130222
  Receipt Date: 20130222
  Transmission Date: 20140127
  Serious: No
  Sender: FDA-Public Use
  Company Number: US-009507513-1302USA005514

PATIENT
  Age: 48 Year
  Sex: Male

DRUGS (2)
  1. PEGINTRON [Suspect]
     Indication: HEPATITIS C
     Dosage: 64 MICROGRAM, QW
     Route: 058
     Dates: start: 20130201, end: 20130211
  2. PEGINTRON [Suspect]
     Dosage: UNK
     Route: 058
     Dates: start: 201302

REACTIONS (3)
  - Pain [Unknown]
  - Decreased appetite [Unknown]
  - Nausea [Unknown]
